FAERS Safety Report 8437084-X (Version None)
Quarter: 2012Q2

REPORT INFORMATION
  Report Type: 
  Country: None (occurrence: None)
  Receive Date: 20120614
  Receipt Date: 20120425
  Transmission Date: 20120825
  Serious: Yes (Hospitalization)
  Sender: FDA-Public Use
  Company Number: US-AMGEN-USASP2012002621

PATIENT
  Age: 58 Year
  Sex: Female
  Weight: 81 kg

DRUGS (13)
  1. NEXIUM [Concomitant]
     Indication: GASTROOESOPHAGEAL REFLUX DISEASE
     Dosage: 40 MG, QD
     Route: 048
  2. CALCIUM WITH VITAMIN D [Concomitant]
     Dosage: UNK
  3. BYSTOLIC [Concomitant]
     Indication: HYPERTENSION
     Dosage: 5 MG, QD
     Route: 048
  4. VICODIN [Concomitant]
     Indication: PAIN
     Dosage: UNK UNK, Q8H
     Route: 048
     Dates: end: 20120103
  5. IBUPROFEN (ADVIL) [Concomitant]
     Dosage: UNK
  6. ZOCOR [Suspect]
     Indication: BLOOD CHOLESTEROL
     Dosage: 10 MG, QHS
     Route: 048
  7. B12                                /00056201/ [Concomitant]
     Dosage: 250 MUG, UNK
  8. PROLIA [Suspect]
     Indication: OSTEOPOROSIS POSTMENOPAUSAL
     Dosage: 60 MG, Q6MO
     Route: 058
     Dates: start: 20111214, end: 20111214
  9. VICODIN [Concomitant]
     Dosage: UNK, Q6H
     Dates: start: 20120104
  10. VITAMIN C                          /00008001/ [Concomitant]
     Dosage: 500 MG, QD
     Route: 048
  11. LOVAZA [Concomitant]
     Dosage: 1 G, TID
     Route: 048
  12. VITAMIN B COMPLEX CAP [Concomitant]
     Dosage: UNK
  13. ULTRACET [Concomitant]
     Indication: PAIN
     Dosage: 1 UNK, Q6H
     Route: 048

REACTIONS (3)
  - BACK PAIN [None]
  - PAIN IN EXTREMITY [None]
  - BONE PAIN [None]
